FAERS Safety Report 7997372-8 (Version None)
Quarter: 2011Q4

REPORT INFORMATION
  Report Type: 
  Country: None (occurrence: None)
  Receive Date: 20111221
  Receipt Date: 20111212
  Transmission Date: 20120403
  Serious: Yes (Other)
  Sender: FDA-Public Use
  Company Number: US-BAYER-2011-120157

PATIENT

DRUGS (1)
  1. SODIUM BICARBONATE [Suspect]
     Dosage: 2 DF, QID

REACTIONS (2)
  - ASTHENIA [None]
  - SOMNOLENCE [None]
